FAERS Safety Report 4744744-0 (Version None)
Quarter: 2005Q3

REPORT INFORMATION
  Report Type: 
  Country: None (occurrence: None)
  Receive Date: 20050815
  Receipt Date: 20050711
  Transmission Date: 20060218
  Serious: Yes (Hospitalization)
  Sender: FDA-Public Use
  Company Number: FR-AMGEN-UK141781

PATIENT
  Age: 79 Year
  Sex: Female

DRUGS (4)
  1. ARANESP [Suspect]
     Indication: DRUG USE FOR UNKNOWN INDICATION
     Route: 058
     Dates: start: 20050609
  2. DILTIAZEM HYDROCHLORIDE [Suspect]
     Route: 048
     Dates: start: 20050528, end: 20050615
  3. FUROSEMIDE [Concomitant]
     Route: 048
  4. PREVISCAN [Concomitant]
     Route: 065

REACTIONS (4)
  - ERYTHEMA [None]
  - PRURITUS [None]
  - TOXIC SKIN ERUPTION [None]
  - VASCULAR PURPURA [None]
